FAERS Safety Report 16979915 (Version 4)
Quarter: 2020Q2

REPORT INFORMATION
  Report Type: Spontaneous
  Country: NL (occurrence: NL)
  Receive Date: 20191031
  Receipt Date: 20200627
  Transmission Date: 20200713
  Serious: Yes (Other)
  Sender: FDA-Public Use
  Company Number: NVSC2019NL016822

PATIENT
  Age: 7 Year
  Sex: Male

DRUGS (11)
  1. AZITHROMYCIN ANHYDROUS. [Suspect]
     Active Substance: AZITHROMYCIN ANHYDROUS
     Indication: MYCOBACTERIUM ABSCESSUS INFECTION
     Dosage: 10 MG/KG, QD
     Route: 048
  2. TIGECYCLINE. [Suspect]
     Active Substance: TIGECYCLINE
     Indication: MYCOBACTERIUM ABSCESSUS INFECTION
     Dosage: 2.4 MG/KG, QD ( IN 2 DOSES)
     Route: 042
  3. TIGECYCLINE. [Suspect]
     Active Substance: TIGECYCLINE
     Dosage: REDUCED DOSE
     Route: 042
  4. AZITHROMYCIN ANHYDROUS. [Suspect]
     Active Substance: AZITHROMYCIN ANHYDROUS
     Indication: MASTOIDITIS
  5. CLOFAZIMINE [Suspect]
     Active Substance: CLOFAZIMINE
     Indication: MYCOBACTERIUM ABSCESSUS INFECTION
     Dosage: 50 MG/KG, QD
     Route: 048
  6. IMIPENEM AND CILASTATIN [Suspect]
     Active Substance: CILASTATIN SODIUM\IMIPENEM
     Indication: MASTOIDITIS
     Dosage: 5 MG/ML, TID (THREE DROPS)
     Route: 061
  7. CLOFAZIMINE [Suspect]
     Active Substance: CLOFAZIMINE
     Indication: MASTOIDITIS
  8. TIGECYCLINE. [Suspect]
     Active Substance: TIGECYCLINE
     Indication: MASTOIDITIS
     Dosage: 5 MG/ML, QID (THREE DROPS)
     Route: 061
  9. IMIPENEM AND CILASTATIN [Suspect]
     Active Substance: CILASTATIN SODIUM\IMIPENEM
     Indication: MYCOBACTERIUM ABSCESSUS INFECTION
     Dosage: 60 MG/KG, QD (IN 2-4 DOSES)
     Route: 042
  10. SODIUM CHLORIDE SOLUTION [Concomitant]
     Active Substance: SODIUM CHLORIDE
     Indication: PRODUCT USED FOR UNKNOWN INDICATION
     Dosage: UNK
     Route: 042
  11. TIGECYCLINE. [Suspect]
     Active Substance: TIGECYCLINE
     Dosage: 3 GTT, Q8H
     Route: 061

REACTIONS (16)
  - Leukopenia [Unknown]
  - Hypertriglyceridaemia [Unknown]
  - Rash [Unknown]
  - Product use in unapproved indication [Unknown]
  - Nausea [Unknown]
  - Vomiting [Unknown]
  - Dysphagia [Unknown]
  - Urticaria [Unknown]
  - Hepatotoxicity [Unknown]
  - Blood cholesterol increased [Unknown]
  - Thrombocytopenia [Unknown]
  - Transaminases increased [Unknown]
  - Poor feeding infant [Unknown]
  - Bone marrow failure [Unknown]
  - Dermatitis [Unknown]
  - Decreased appetite [Unknown]
